FAERS Safety Report 7999601-3 (Version None)
Quarter: 2011Q4

REPORT INFORMATION
  Report Type: 
  Country: None (occurrence: None)
  Receive Date: 20111221
  Receipt Date: 20111214
  Transmission Date: 20120403
  Serious: Yes (Other)
  Sender: FDA-Public Use
  Company Number: AT-MERCK-1112AUT00009

PATIENT
  Age: 19 Month
  Sex: Male
  Weight: 15 kg

DRUGS (1)
  1. SINGULAIR [Suspect]
     Indication: BRONCHITIS CHRONIC
     Route: 048
     Dates: start: 20111027, end: 20111119

REACTIONS (4)
  - DIZZINESS [None]
  - VERTIGO [None]
  - SYNCOPE [None]
  - APNOEA [None]
